FAERS Safety Report 4316349-7 (Version None)
Quarter: 2004Q1

REPORT INFORMATION
  Report Type: 
  Country: None (occurrence: None)
  Receive Date: 20040310
  Receipt Date: 20030603
  Transmission Date: 20041129
  Serious: Yes (Other)
  Sender: FDA-Public Use
  Company Number: HQWYE461304JUN03

PATIENT
  Sex: Female
  Weight: 63.11 kg

DRUGS (6)
  1. PROTONIX [Suspect]
     Indication: GASTROOESOPHAGEAL REFLUX DISEASE
     Dosage: 40 MG 1 X PER 1 DAY, ORAL
     Route: 048
     Dates: start: 20030529
  2. AMBIEN [Concomitant]
  3. LOVENOX [Concomitant]
  4. QUINAPRIL HCL [Concomitant]
  5. COREG [Concomitant]
  6. PAXIL [Concomitant]

REACTIONS (1)
  - PSYCHOTIC DISORDER [None]
